FAERS Safety Report 8890482 (Version 1)
Quarter: 2012Q4

REPORT INFORMATION
  Report Type: 
  Country: US (occurrence: US)
  Receive Date: 20121107
  Receipt Date: 20121107
  Transmission Date: 20130627
  Serious: No
  Sender: FDA-Public Use
  Company Number: US-009507513-1210USA014355

PATIENT
  Sex: Female

DRUGS (4)
  1. FOSAMAX [Suspect]
     Route: 048
  2. BONIVA [Suspect]
  3. ACTONEL [Suspect]
  4. EVISTA [Suspect]

REACTIONS (2)
  - Oesophageal disorder [Unknown]
  - Burning sensation [Unknown]
